FAERS Safety Report 7381783-8 (Version None)
Quarter: 2011Q1

REPORT INFORMATION
  Report Type: 
  Country: None (occurrence: None)
  Receive Date: 20110329
  Receipt Date: 20101022
  Transmission Date: 20110831
  Serious: Yes (Hospitalization, Other)
  Sender: FDA-Public Use
  Company Number: US-BAYER-200942679NA

PATIENT
  Sex: Female

DRUGS (10)
  1. MACROBID [Concomitant]
  2. YAZ [Suspect]
     Indication: PRODUCT USED FOR UNKNOWN INDICATION
     Dosage: UNK
     Dates: start: 20090401, end: 20090601
  3. BENTYL [Concomitant]
     Dates: start: 20080408
  4. LORTAB [Concomitant]
     Dates: start: 20080408
  5. FLAGYL [Concomitant]
     Dosage: UNK
     Dates: start: 20090601
  6. PHENERGAN HCL [Concomitant]
     Dates: start: 20080408
  7. ZOFRAN [Concomitant]
  8. UNCODEABLE ^UNCLASSIFIABLE^ [Concomitant]
  9. PRENATAL VITAMINS [Concomitant]
  10. LORTAB [Concomitant]
     Dates: start: 20090712

REACTIONS (1)
  - THROMBOSIS [None]
